FAERS Safety Report 25829996 (Version 3)
Quarter: 2025Q4

REPORT INFORMATION
  Report Type: Spontaneous
  Country: US (occurrence: US)
  Receive Date: 20250922
  Receipt Date: 20251001
  Transmission Date: 20260119
  Serious: Yes (Disabling, Other)
  Sender: ADVANZ PHARMA
  Company Number: US-MLMSERVICE-20250904-PI632020-00232-1

PATIENT

DRUGS (3)
  1. HYDROXYCHLOROQUINE [Suspect]
     Active Substance: HYDROXYCHLOROQUINE
     Indication: Systemic lupus erythematosus
     Dosage: UNK
  2. PREDNISONE [Suspect]
     Active Substance: PREDNISONE
     Indication: Systemic lupus erythematosus
     Dosage: UNK
  3. MYCOPHENOLIC ACID [Suspect]
     Active Substance: MYCOPHENOLIC ACID
     Indication: Systemic lupus erythematosus
     Dosage: UNK

REACTIONS (12)
  - Central nervous system lymphoma [Unknown]
  - Diffuse large B-cell lymphoma [Unknown]
  - Retinal vasculitis [Not Recovered/Not Resolved]
  - Blindness unilateral [Not Recovered/Not Resolved]
  - Macular oedema [Not Recovered/Not Resolved]
  - Retinal haemorrhage [Not Recovered/Not Resolved]
  - Retinal vascular disorder [Not Recovered/Not Resolved]
  - Pseudopapilloedema [Not Recovered/Not Resolved]
  - Sensory loss [Unknown]
  - Pupillary reflex impaired [Not Recovered/Not Resolved]
  - Retinal perivascular sheathing [Not Recovered/Not Resolved]
  - Muscular weakness [Unknown]
